FAERS Safety Report 10482981 (Version 2)
Quarter: 2014Q3

REPORT INFORMATION
  Report Type: Spontaneous
  Country: FR (occurrence: FR)
  Receive Date: 20140929
  Receipt Date: 20140929
  Transmission Date: 20150326
  Serious: Yes (Other)
  Sender: FDA-Public Use
  Company Number: PHHY2014FR115453

PATIENT

DRUGS (2)
  1. AMOXICILLIN CLAVULANIC ACID SANDOZ [Suspect]
     Active Substance: AMOXICILLIN\CLAVULANIC ACID
     Dosage: 0.7 ML, TID, PRESCRIBED DOSE
     Route: 048
  2. AMOXICILLIN CLAVULANIC ACID SANDOZ [Suspect]
     Active Substance: AMOXICILLIN\CLAVULANIC ACID
     Dosage: 5.6 ML, TID (SEVEN ADMINISTRATION FOR 2.5 DAYS)
     Route: 048
     Dates: start: 20140831

REACTIONS (3)
  - Accidental overdose [Unknown]
  - Drug dispensing error [Unknown]
  - Diarrhoea [Unknown]

NARRATIVE: CASE EVENT DATE: 20140831
